FAERS Safety Report 8571735-4 (Version None)
Quarter: 2012Q3

REPORT INFORMATION
  Report Type: 
  Country: None (occurrence: None)
  Receive Date: 20120806
  Receipt Date: 20120802
  Transmission Date: 20120928
  Serious: Yes (Hospitalization)
  Sender: FDA-Public Use
  Company Number: PHHY2012NL066883

PATIENT
  Sex: Male

DRUGS (3)
  1. ZOMETA [Suspect]
     Dosage: 4 MG/100 1X PER 28 DAYS
     Dates: start: 20120606
  2. ZOMETA [Suspect]
     Indication: PROSTATE CANCER METASTATIC
     Dosage: 4 MG/100 1X PER 28 DAYS
  3. ZOMETA [Suspect]
     Dosage: 4 MG/100 1X PER 28 DAYS
     Dates: start: 20111223

REACTIONS (4)
  - PUPILLARY DISORDER [None]
  - HAEMOGLOBIN DECREASED [None]
  - LIMB DISCOMFORT [None]
  - ASTHENIA [None]
